FAERS Safety Report 8216443-4 (Version None)
Quarter: 2012Q1

REPORT INFORMATION
  Report Type: 
  Country: None (occurrence: None)
  Receive Date: 20120316
  Receipt Date: 20120315
  Transmission Date: 20120608
  Serious: Yes (Life-Threatening)
  Sender: FDA-Public Use
  Company Number: PHHY2012ES022735

PATIENT
  Age: 74 Year
  Sex: Female

DRUGS (3)
  1. CAFERGOT [Concomitant]
  2. LORAZEPAM [Concomitant]
  3. GLEEVEC [Suspect]
     Indication: CHRONIC MYELOID LEUKAEMIA
     Dosage: 400 MG, DAILY
     Route: 048
     Dates: start: 20080507

REACTIONS (2)
  - PANCREATIC CARCINOMA [None]
  - NEOPLASM MALIGNANT [None]
